FAERS Safety Report 10186861 (Version 2)
Quarter: 2014Q2

REPORT INFORMATION
  Report Type: Spontaneous
  Country: FR (occurrence: FR)
  Receive Date: 20140522
  Receipt Date: 20140522
  Transmission Date: 20141212
  Serious: Yes (Hospitalization, Other)
  Sender: FDA-Public Use
  Company Number: FR-ROCHE-1358826

PATIENT
  Sex: Female

DRUGS (2)
  1. ZELBORAF [Suspect]
     Indication: METASTATIC MALIGNANT MELANOMA
     Route: 065
  2. ZELBORAF [Suspect]
     Dosage: DOSE DECREASED TO 3/4 OF THE INITIAL DOSE
     Route: 065
     Dates: start: 201401

REACTIONS (3)
  - Vomiting [Not Recovered/Not Resolved]
  - Hepatitis [Unknown]
  - Candida infection [Unknown]
